FAERS Safety Report 9728753 (Version 1)
Quarter: 2013Q4

REPORT INFORMATION
  Report Type: Report from Study
  Country: US (occurrence: US)
  Receive Date: 20131204
  Receipt Date: 20131204
  Transmission Date: 20140711
  Serious: Yes (Other)
  Sender: FDA-Public Use
  Company Number: US-US-EMD SERONO, INC.-7253161

PATIENT
  Age: 11 Year
  Sex: Female
  Weight: 40 kg

DRUGS (4)
  1. SAIZEN [(SOMATROPIN (RDNA ORIGIN) FOR INJECTION)] [Suspect]
     Indication: BODY HEIGHT BELOW NORMAL
     Route: 058
     Dates: start: 20120210
  2. SAIZEN [(SOMATROPIN (RDNA ORIGIN) FOR INJECTION)] [Suspect]
     Indication: SMALL FOR DATES BABY
  3. SAIZEN [(SOMATROPIN (RDNA ORIGIN) FOR INJECTION)] [Suspect]
     Indication: BONE DISORDER
  4. SAIZEN [(SOMATROPIN (RDNA ORIGIN) FOR INJECTION)] [Suspect]
     Indication: PRECOCIOUS PUBERTY

REACTIONS (5)
  - Epiphysiolysis [Recovering/Resolving]
  - Breast disorder [Unknown]
  - Blood alkaline phosphatase increased [Unknown]
  - Blood urea nitrogen/creatinine ratio increased [Unknown]
  - Blood glucose increased [Unknown]
